FAERS Safety Report 14899904 (Version 1)
Quarter: 2018Q2

REPORT INFORMATION
  Report Type: Spontaneous
  Country: FR (occurrence: FR)
  Receive Date: 20180516
  Receipt Date: 20180516
  Transmission Date: 20180711
  Serious: Yes (Hospitalization, Other)
  Sender: FDA-Public Use
  Company Number: FR-MERCK KGAA-2047861

PATIENT
  Age: 81 Year
  Sex: Female

DRUGS (1)
  1. NOVOTHYROX [Suspect]
     Active Substance: LEVOTHYROXINE SODIUM
     Indication: AUTOIMMUNE THYROIDITIS
     Dates: start: 201705

REACTIONS (37)
  - Myalgia [None]
  - Pharyngeal oedema [None]
  - Fatigue [None]
  - Arthralgia [None]
  - Social avoidant behaviour [None]
  - Blood cholesterol increased [None]
  - Haemoglobin decreased [Recovered/Resolved]
  - Mood swings [None]
  - Laboratory test abnormal [Recovered/Resolved]
  - Monocyte count increased [Recovered/Resolved]
  - Vertigo [None]
  - Insomnia [None]
  - Balance disorder [None]
  - Decreased appetite [None]
  - Alopecia [None]
  - Dysphagia [None]
  - Dry mouth [None]
  - Serum ferritin decreased [Recovered/Resolved]
  - Anaemia [None]
  - Apathy [None]
  - Glycosylated haemoglobin increased [None]
  - Blood triglycerides increased [None]
  - Aspartate aminotransferase increased [None]
  - Muscle spasms [None]
  - Malaise [None]
  - Depression [None]
  - Loss of personal independence in daily activities [None]
  - Blood glucose increased [None]
  - Diarrhoea [None]
  - Atrial fibrillation [None]
  - Dizziness [None]
  - Gait disturbance [None]
  - Anxiety [None]
  - Vision blurred [None]
  - Alanine aminotransferase increased [None]
  - Gamma-glutamyltransferase increased [None]
  - Nervousness [None]

NARRATIVE: CASE EVENT DATE: 201706
